FAERS Safety Report 8303721-3 (Version None)
Quarter: 2012Q1

REPORT INFORMATION
  Report Type: 
  Country: None (occurrence: None)
  Receive Date: 20120326
  Receipt Date: 20110919
  Transmission Date: 20120608
  Serious: Yes (Hospitalization)
  Sender: FDA-Public Use
  Company Number: PHEH11US04695

PATIENT
  Age: 70 Year
  Sex: Female

DRUGS (1)
  1. TASIGNA [Suspect]
     Indication: WALDENSTROM'S MACROGLOBULINAEMIA
     Dosage: 400 MG, BID, ORAL
     Route: 048
     Dates: start: 20110729

REACTIONS (3)
  - DISEASE PROGRESSION [None]
  - PANCREATIC ENZYMES INCREASED [None]
  - DRUG INEFFECTIVE [None]
